FAERS Safety Report 7118399-4 (Version None)
Quarter: 2010Q4

REPORT INFORMATION
  Report Type: 
  Country: None (occurrence: None)
  Receive Date: 20101123
  Receipt Date: 20101111
  Transmission Date: 20110411
  Serious: Yes (Other)
  Sender: FDA-Public Use
  Company Number: US-RB-015156-10

PATIENT
  Sex: Male

DRUGS (4)
  1. MUCINEX D [Suspect]
     Indication: RESPIRATORY TRACT CONGESTION
     Dosage: PATIENT TOOK 9 TABLETS OVER A FEW DAYS, TAKING 2 AT A TIME EVERY 12 HOURS.
     Route: 048
  2. MUCINEX D [Suspect]
     Indication: HEADACHE
     Dosage: PATIENT TOOK 9 TABLETS OVER A FEW DAYS, TAKING 2 AT A TIME EVERY 12 HOURS.
     Route: 048
  3. MUCINEX D [Suspect]
     Dosage: PATIENT TOOK 9 TABLETS OVER A FEW DAYS, TAKING 2 AT A TIME EVERY 12 HOURS.
     Route: 048
  4. ASPIRIN [Concomitant]

REACTIONS (3)
  - ANURIA [None]
  - OFF LABEL USE [None]
  - URINARY TRACT DISORDER [None]
